FAERS Safety Report 24788438 (Version 1)
Quarter: 2024Q4

REPORT INFORMATION
  Report Type: Spontaneous
  Country: JP (occurrence: JP)
  Receive Date: 20241230
  Receipt Date: 20241230
  Transmission Date: 20250115
  Serious: Yes (Other)
  Sender: ROCHE
  Company Number: JP-ROCHE-10000166127

PATIENT
  Age: 15 Year
  Sex: Female
  Weight: 38 kg

DRUGS (11)
  1. ATEZOLIZUMAB [Suspect]
     Active Substance: ATEZOLIZUMAB
     Indication: Hepatocellular carcinoma
     Route: 065
     Dates: start: 20221020
  2. ATEZOLIZUMAB [Suspect]
     Active Substance: ATEZOLIZUMAB
     Route: 065
     Dates: start: 20221128
  3. ATEZOLIZUMAB [Suspect]
     Active Substance: ATEZOLIZUMAB
     Route: 065
     Dates: start: 20231127
  4. BEVACIZUMAB [Suspect]
     Active Substance: BEVACIZUMAB
     Indication: Hepatocellular carcinoma
     Route: 065
     Dates: start: 20221020
  5. BEVACIZUMAB [Suspect]
     Active Substance: BEVACIZUMAB
     Route: 065
     Dates: start: 20221128
  6. BEVACIZUMAB [Suspect]
     Active Substance: BEVACIZUMAB
     Route: 065
     Dates: start: 20231127
  7. DURVALUMAB [Concomitant]
     Active Substance: DURVALUMAB
     Dates: start: 20230328
  8. TREMELIMUMAB [Concomitant]
     Active Substance: TREMELIMUMAB
     Dates: start: 20230328
  9. PREDNISOLONE [Concomitant]
     Active Substance: PREDNISOLONE
  10. INFLIXIMAB [Concomitant]
     Active Substance: INFLIXIMAB
  11. LENVATINIB [Concomitant]
     Active Substance: LENVATINIB
     Dates: start: 20230816

REACTIONS (1)
  - Disease progression [Unknown]
